FAERS Safety Report 7967665-9 (Version None)
Quarter: 2011Q4

REPORT INFORMATION
  Report Type: 
  Country: None (occurrence: None)
  Receive Date: 20111207
  Receipt Date: 20111128
  Transmission Date: 20120403
  Serious: Yes (Other)
  Sender: FDA-Public Use
  Company Number: MIN-00809

PATIENT
  Age: 18 Year

DRUGS (2)
  1. STABLE ANTIRETROVIRAL REGIMEN (UNSPECIFIED) [Concomitant]
  2. MINOCYCLINE HCL [Suspect]
     Indication: COGNITIVE DISORDER
     Dosage: 100MG 12 HOURS, ORALLY
     Route: 048

REACTIONS (1)
  - BASAL CELL CARCINOMA [None]
